FAERS Safety Report 8870270 (Version 1)
Quarter: 2012Q4

REPORT INFORMATION
  Report Type: 
  Country: AU (occurrence: AU)
  Receive Date: 20121026
  Receipt Date: 20121026
  Transmission Date: 20130627
  Serious: Yes (Hospitalization, Other)
  Sender: FDA-Public Use
  Company Number: AU-009507513-1210AUS010532

PATIENT
  Age: 56 Year

DRUGS (2)
  1. RIBAVIRIN [Suspect]
     Dosage: UNK
     Route: 048
     Dates: start: 20120222
  2. PEGASYS [Suspect]
     Dosage: UNK
     Route: 065
     Dates: start: 20120222

REACTIONS (2)
  - Pneumonia [Unknown]
  - Cerebral haemorrhage [Unknown]
